FAERS Safety Report 19908608 (Version 1)
Quarter: 2021Q4

REPORT INFORMATION
  Report Type: Spontaneous
  Country: US (occurrence: US)
  Receive Date: 20211001
  Receipt Date: 20211001
  Transmission Date: 20220303
  Serious: No
  Sender: FDA-Public Use
  Company Number: US-AMARIN PHARMA, INC.-2020AMR000569

PATIENT
  Age: 79 Year
  Sex: Female
  Weight: 95.34 kg

DRUGS (1)
  1. VASCEPA [Suspect]
     Active Substance: ICOSAPENT ETHYL
     Indication: Blood cholesterol abnormal
     Route: 048
     Dates: start: 2017

REACTIONS (5)
  - Urinary tract infection [Unknown]
  - Pain [Unknown]
  - Atrial fibrillation [Recovered/Resolved]
  - Product odour abnormal [Unknown]
  - Product adhesion issue [Unknown]

NARRATIVE: CASE EVENT DATE: 20181101
